FAERS Safety Report 9661052 (Version 4)
Quarter: 2013Q4

REPORT INFORMATION
  Report Type: Report from Study
  Country: US (occurrence: US)
  Receive Date: 20131031
  Receipt Date: 20131202
  Transmission Date: 20140711
  Serious: Yes (Other)
  Sender: FDA-Public Use
  Company Number: US-VIIV HEALTHCARE LIMITED-B0937617A

PATIENT
  Age: 41 Year
  Sex: Male
  Weight: 84 kg

DRUGS (1)
  1. DOLUTEGRAVIR [Suspect]
     Indication: HIV INFECTION
     Dosage: 50MG PER DAY
     Route: 048
     Dates: start: 20120223

REACTIONS (1)
  - Acute coronary syndrome [Recovered/Resolved]
